FAERS Safety Report 9703729 (Version 1)
Quarter: 2013Q4

REPORT INFORMATION
  Report Type: Report from Study
  Country: CA (occurrence: CA)
  Receive Date: 20131122
  Receipt Date: 20131122
  Transmission Date: 20140711
  Serious: Yes (Hospitalization, Other)
  Sender: FDA-Public Use
  Company Number: CA-JNJFOC-20131110556

PATIENT
  Age: 51 Year
  Sex: Female
  Weight: 56.7 kg

DRUGS (2)
  1. REMICADE [Suspect]
     Indication: CROHN^S DISEASE
     Route: 042
     Dates: start: 20120710, end: 20130710
  2. PREDNISONE [Concomitant]
     Route: 065

REACTIONS (4)
  - Haemorrhage [Unknown]
  - Obstruction [Unknown]
  - Influenza like illness [Unknown]
  - Drug ineffective [Unknown]
